FAERS Safety Report 5374492-8 (Version None)
Quarter: 2007Q2

REPORT INFORMATION
  Report Type: 
  Country: None (occurrence: None)
  Receive Date: 20070629
  Receipt Date: 20070312
  Transmission Date: 20071010
  Serious: No
  Sender: FDA-Public Use
  Company Number: A0642846A

PATIENT
  Age: 76 Year
  Sex: Female

DRUGS (7)
  1. ADVAIR DISKUS 100/50 [Suspect]
     Indication: CHRONIC OBSTRUCTIVE PULMONARY DISEASE
     Dosage: 1PUFF TWICE PER DAY
     Route: 055
     Dates: start: 20070307
  2. UNKNOWN MEDICATION [Concomitant]
  3. GUAIFENESIN [Concomitant]
  4. LEVOXYL [Concomitant]
  5. FLURAZEPAM [Concomitant]
  6. UNKNOWN MEDICATION [Concomitant]
  7. NAPROSYN [Concomitant]

REACTIONS (1)
  - DRUG INEFFECTIVE [None]
